FAERS Safety Report 24526070 (Version 1)
Quarter: 2024Q4

REPORT INFORMATION
  Report Type: Spontaneous
  Country: FR (occurrence: FR)
  Receive Date: 20241021
  Receipt Date: 20241021
  Transmission Date: 20250115
  Serious: Yes (Other)
  Sender: KVK-TECH
  Company Number: FR-KVK-TECH, INC-20241000145

PATIENT

DRUGS (1)
  1. DEXTROAMPHETAMINE SULFATE [Suspect]
     Active Substance: DEXTROAMPHETAMINE SULFATE
     Indication: Narcolepsy
     Dosage: 150 MILLIGRAM, QD (PER DAY)
     Route: 065

REACTIONS (2)
  - Dementia with Lewy bodies [Recovered/Resolved]
  - Drug abuse [Recovered/Resolved]
